FAERS Safety Report 8724317 (Version 2)
Quarter: 2012Q4

REPORT INFORMATION
  Report Type: 
  Country: JP (occurrence: JP)
  Receive Date: 20120815
  Receipt Date: 20121107
  Transmission Date: 20130627
  Serious: Yes (Hospitalization)
  Sender: FDA-Public Use
  Company Number: JP-ABBOTT-12P-087-0965950-00

PATIENT
  Age: 69 Year
  Sex: Female

DRUGS (9)
  1. NORVIR TABLETS [Suspect]
     Indication: HIV INFECTION
     Route: 048
     Dates: start: 20050106, end: 20110530
  2. REYATAZ [Suspect]
     Indication: HIV INFECTION
     Route: 048
     Dates: start: 20050106, end: 20110530
  3. VIREAD [Suspect]
     Indication: HIV INFECTION
     Route: 048
     Dates: start: 20050106, end: 20110530
  4. EPIVIR [Suspect]
     Indication: HIV INFECTION
     Route: 048
     Dates: start: 20041214, end: 20041230
  5. EPIVIR [Suspect]
     Route: 048
     Dates: start: 20050106, end: 20110530
  6. EPZICOM [Concomitant]
     Indication: HIV INFECTION
     Route: 048
     Dates: start: 20110531
  7. ISENTRESS [Concomitant]
     Indication: HIV INFECTION
     Route: 048
     Dates: start: 20110531
  8. BLOPRESS [Concomitant]
     Indication: HYPERTENSION
     Route: 048
     Dates: start: 20040401
  9. ZYTREC [Concomitant]
     Indication: RHINITIS
     Route: 048
     Dates: start: 20050906

REACTIONS (3)
  - Renal impairment [Recovered/Resolved]
  - Diarrhoea [Recovered/Resolved]
  - Dehydration [Recovered/Resolved]
